FAERS Safety Report 9615234 (Version 2)
Quarter: 2013Q4

REPORT INFORMATION
  Report Type: Spontaneous
  Country: US (occurrence: US)
  Receive Date: 20131011
  Receipt Date: 20131011
  Transmission Date: 20140711
  Serious: No
  Sender: FDA-Public Use
  Company Number: US-PURDUE-USA-2012-0088781

PATIENT
  Age: 94 Year
  Sex: Male
  Weight: 72.56 kg

DRUGS (1)
  1. BUTRANS [Suspect]
     Indication: LUMBAR SPINAL STENOSIS
     Dosage: 5 MCG, UNK
     Route: 062
     Dates: start: 20120702, end: 20120705

REACTIONS (2)
  - Drug effect increased [Recovered/Resolved]
  - Sedation [Recovered/Resolved]
